FAERS Safety Report 16304985 (Version 2)
Quarter: 2019Q3

REPORT INFORMATION
  Report Type: Spontaneous
  Country: AU (occurrence: AU)
  Receive Date: 20190513
  Receipt Date: 20190724
  Transmission Date: 20191004
  Serious: Yes (Hospitalization)
  Sender: FDA-Public Use
  Company Number: AU-BRISTOL-MYERS SQUIBB COMPANY-BMS-2019-043972

PATIENT

DRUGS (1)
  1. IPILIMUMAB [Suspect]
     Active Substance: IPILIMUMAB
     Indication: MALIGNANT MELANOMA
     Dosage: 10 MILLIGRAM/KILOGRAM, Q3WK
     Route: 065
     Dates: start: 2009

REACTIONS (3)
  - Prescribed overdose [Unknown]
  - Pyrexia [Unknown]
  - Skin toxicity [Unknown]
